FAERS Safety Report 23054912 (Version 1)
Quarter: 2023Q4

REPORT INFORMATION
  Report Type: Spontaneous
  Country: US (occurrence: None)
  Receive Date: 20231010
  Receipt Date: 20231010
  Transmission Date: 20240110
  Serious: Yes (Other)
  Sender: FDA-Public Use
  Company Number: None

PATIENT
  Age: 40 Year
  Sex: Female
  Weight: 49.2 kg

DRUGS (3)
  1. VYEPTI [Suspect]
     Active Substance: EPTINEZUMAB-JJMR
  2. Vypeti [Concomitant]
     Dates: start: 20230626, end: 20230626
  3. VYEPTI [Concomitant]
     Active Substance: EPTINEZUMAB-JJMR
     Dates: start: 20230926, end: 20230926

REACTIONS (2)
  - Pneumothorax [None]
  - Symptom recurrence [None]

NARRATIVE: CASE EVENT DATE: 20230926
